FAERS Safety Report 20682163 (Version 2)
Quarter: 2022Q2

REPORT INFORMATION
  Report Type: Other
  Country: HK (occurrence: None)
  Receive Date: 20220407
  Receipt Date: 20220413
  Transmission Date: 20220721
  Serious: Yes (Other)
  Sender: FDA-Public Use
  Company Number: HK-ROCHE-3062311

PATIENT
  Sex: Male

DRUGS (2)
  1. GAZYVA [Suspect]
     Active Substance: OBINUTUZUMAB
     Indication: Product used for unknown indication
     Route: 042
     Dates: start: 20211221
  2. GLOFITAMAB [Suspect]
     Active Substance: GLOFITAMAB
     Indication: Product used for unknown indication
     Route: 065

REACTIONS (1)
  - Cytokine release syndrome [Unknown]
